FAERS Safety Report 7071200-X (Version None)
Quarter: 2010Q4

REPORT INFORMATION
  Report Type: 
  Country: None (occurrence: None)
  Receive Date: 20101029
  Receipt Date: 20101023
  Transmission Date: 20110411
  Serious: Yes (Hospitalization)
  Sender: FDA-Public Use
  Company Number: US-RB-014650-10

PATIENT
  Age: 44 Year
  Sex: Female

DRUGS (2)
  1. SUBOXONE [Suspect]
     Indication: DRUG DEPENDENCE
     Route: 060
     Dates: start: 20090201
  2. SYNTHROID [Concomitant]
     Indication: THYROID HORMONE REPLACEMENT THERAPY
     Dosage: UNKNOWN DOSING DETAILS
     Route: 065

REACTIONS (7)
  - CONTUSION [None]
  - DENTAL CARIES [None]
  - INGUINAL HERNIA [None]
  - TOOTH FRACTURE [None]
  - TOOTH INJURY [None]
  - VICTIM OF CRIME [None]
  - WITHDRAWAL SYNDROME [None]
